FAERS Safety Report 19810247 (Version 3)
Quarter: 2021Q3

REPORT INFORMATION
  Report Type: Report from Study
  Country: None (occurrence: US)
  Receive Date: 20210908
  Receipt Date: 20210917
  Transmission Date: 20211014
  Serious: Yes (Hospitalization, Other)
  Sender: FDA-Public Use
  Company Number: US-ABBVIE-21K-163-4071228-00

PATIENT
  Age: 69 Year
  Sex: Female
  Weight: 65.83 kg

DRUGS (3)
  1. RINVOQ [Suspect]
     Active Substance: UPADACITINIB
     Indication: RHEUMATOID ARTHRITIS
     Route: 048
     Dates: start: 20210305, end: 2021
  2. MODERNA COVID?19 VACCINE [Concomitant]
     Active Substance: CX-024414
     Indication: COVID-19 IMMUNISATION
     Dates: start: 20210102, end: 20210102
  3. MODERNA COVID?19 VACCINE [Concomitant]
     Active Substance: CX-024414
     Dates: start: 20210203, end: 20210203

REACTIONS (5)
  - Pneumonia [Not Recovered/Not Resolved]
  - Ear pain [Recovered/Resolved]
  - Illness [Recovering/Resolving]
  - Ear infection [Unknown]
  - Oxygen saturation decreased [Not Recovered/Not Resolved]

NARRATIVE: CASE EVENT DATE: 202109
